FAERS Safety Report 12207655 (Version 4)
Quarter: 2016Q4

REPORT INFORMATION
  Report Type: Spontaneous
  Country: JP (occurrence: JP)
  Receive Date: 20160324
  Receipt Date: 20161101
  Transmission Date: 20170207
  Serious: Yes (Hospitalization)
  Sender: FDA-Public Use
  Company Number: JP-SA-2016SA052787

PATIENT
  Age: 75 Year
  Sex: Male
  Weight: 69.8 kg

DRUGS (18)
  1. PREDONINE [Suspect]
     Active Substance: PREDNISOLONE\PREDNISOLONE ACETATE\PREDNISOLONE SODIUM SUCCINATE
     Indication: HORMONE-REFRACTORY PROSTATE CANCER
     Route: 048
     Dates: start: 20150820
  2. ZYTIGA [Concomitant]
     Active Substance: ABIRATERONE ACETATE
  3. RANMARK [Concomitant]
     Active Substance: DENOSUMAB
     Indication: METASTASES TO BONE
     Dosage: ONCE EVERY FOUR WEEKS
     Route: 058
     Dates: start: 20150821
  4. POLAPREZINC [Concomitant]
     Active Substance: POLAPREZINC
     Indication: DYSGEUSIA
     Route: 048
     Dates: start: 20151210
  5. ODYNE [Concomitant]
     Active Substance: FLUTAMIDE
  6. ESTRAMUSTINE [Concomitant]
     Active Substance: ESTRAMUSTINE
  7. LEUPLIN [Concomitant]
     Active Substance: LEUPROLIDE ACETATE
  8. JEVTANA [Suspect]
     Active Substance: CABAZITAXEL
     Indication: HORMONE-REFRACTORY PROSTATE CANCER
     Route: 041
  9. DOCETAXEL. [Concomitant]
     Active Substance: DOCETAXEL
  10. DENOTAS CHEWABLE COMBINATION TABLET [Concomitant]
     Active Substance: CALCIUM CARBONATE\CHOLECALCIFEROL\MAGNESIUM CARBONATE
     Route: 048
     Dates: start: 20150821
  11. G-LASTA [Concomitant]
     Active Substance: PEGFILGRASTIM
     Route: 058
     Dates: start: 20150821
  12. UFT [Concomitant]
     Active Substance: TEGAFUR\URACIL
  13. JEVTANA [Suspect]
     Active Substance: CABAZITAXEL
     Indication: HORMONE-REFRACTORY PROSTATE CANCER
     Dosage: 80% OF 44.7?MG
     Route: 041
     Dates: start: 20150820, end: 20150910
  14. URIEF [Concomitant]
     Active Substance: SILODOSIN
     Indication: DYSURIA
     Route: 048
  15. JEVTANA [Suspect]
     Active Substance: CABAZITAXEL
     Indication: HORMONE-REFRACTORY PROSTATE CANCER
     Route: 041
     Dates: start: 20151001, end: 20160216
  16. BICALUTAMIDE. [Concomitant]
     Active Substance: BICALUTAMIDE
  17. PROSEXOL [Concomitant]
     Active Substance: ETHINYL ESTRADIOL
  18. XTANDI [Concomitant]
     Active Substance: ENZALUTAMIDE

REACTIONS (1)
  - Herpes zoster [Recovered/Resolved]

NARRATIVE: CASE EVENT DATE: 20160309
